FAERS Safety Report 9243245 (Version 1)
Quarter: 2013Q2

REPORT INFORMATION
  Report Type: Spontaneous
  Country: US (occurrence: US)
  Receive Date: 20130419
  Receipt Date: 20130419
  Transmission Date: 20140414
  Serious: Yes (Hospitalization)
  Sender: FDA-Public Use
  Company Number: US-ASTRAZENECA-2013SE24487

PATIENT
  Age: 48 Year
  Sex: Female
  Weight: 61.2 kg

DRUGS (2)
  1. NEXIUM [Suspect]
     Indication: GASTROOESOPHAGEAL REFLUX DISEASE
     Dosage: DAILY
     Route: 048
     Dates: start: 201301, end: 20130402
  2. METOPROLOL [Suspect]
     Indication: HYPERTENSION
     Route: 065
     Dates: start: 201302

REACTIONS (11)
  - Hypotension [Unknown]
  - Heart rate irregular [Unknown]
  - Gastric pH decreased [Unknown]
  - Cardiac disorder [Unknown]
  - Malaise [Unknown]
  - Vomiting [Unknown]
  - Abdominal discomfort [Unknown]
  - Drug effect delayed [Unknown]
  - Intentional drug misuse [Unknown]
  - Hypertension [Unknown]
  - Blood potassium decreased [Unknown]
